FAERS Safety Report 7356163-1 (Version None)
Quarter: 2011Q1

REPORT INFORMATION
  Report Type: 
  Country: None (occurrence: None)
  Receive Date: 20110316
  Receipt Date: 20110309
  Transmission Date: 20110831
  Serious: Yes (Other)
  Sender: FDA-Public Use
  Company Number: CA-ABBOTT-11P-028-0711097-00

PATIENT
  Sex: Female
  Weight: 52.21 kg

DRUGS (7)
  1. TOBREX [Concomitant]
     Indication: CATARACT
     Route: 047
     Dates: start: 20100819, end: 20110210
  2. VITAMIN B-12 [Concomitant]
     Indication: CROHN'S DISEASE
     Route: 058
     Dates: start: 20090501
  3. CELEBREX [Concomitant]
     Indication: SYSTEMIC LUPUS ERYTHEMATOSUS
     Route: 048
     Dates: start: 20100401
  4. VIGAMOX [Concomitant]
     Indication: CATARACT
     Route: 047
     Dates: start: 20100819, end: 20110210
  5. HUMIRA [Suspect]
     Indication: CROHN'S DISEASE
     Route: 058
     Dates: start: 20100731
  6. NEVANAC OPHTHALMIC [Concomitant]
     Indication: CATARACT
     Route: 047
     Dates: start: 20100819, end: 20110210
  7. HUMIRA [Suspect]
     Indication: CROHN'S DISEASE
     Route: 058

REACTIONS (5)
  - FIBROMYALGIA [None]
  - THROAT IRRITATION [None]
  - NEPHROLITHIASIS [None]
  - CATARACT [None]
  - INJECTION SITE PAIN [None]
